FAERS Safety Report 8321360-5 (Version None)
Quarter: 2012Q2

REPORT INFORMATION
  Report Type: 
  Country: None (occurrence: None)
  Receive Date: 20120430
  Receipt Date: 20090922
  Transmission Date: 20120825
  Serious: No
  Sender: FDA-Public Use
  Company Number: US-TEVA-2009010566

PATIENT
  Sex: Female
  Weight: 59.02 kg

DRUGS (2)
  1. XYREM [Concomitant]
     Indication: NARCOLEPSY
  2. NUVIGIL [Suspect]
     Indication: NARCOLEPSY
     Dates: start: 20090820, end: 20090904

REACTIONS (7)
  - ORAL HERPES [None]
  - BLOOD IRON DECREASED [None]
  - WHITE BLOOD CELL COUNT INCREASED [None]
  - PRURITUS [None]
  - DRY SKIN [None]
  - RASH [None]
  - PETECHIAE [None]
